FAERS Safety Report 4367488-6 (Version None)
Quarter: 2004Q2

REPORT INFORMATION
  Report Type: 
  Country: None (occurrence: None)
  Receive Date: 20040601
  Receipt Date: 20020709
  Transmission Date: 20050107
  Serious: Yes (Hospitalization)
  Sender: FDA-Public Use
  Company Number: 200212775FR

PATIENT
  Age: 60 Year
  Sex: Male

DRUGS (3)
  1. AMAREL [Suspect]
     Indication: DIABETES MELLITUS NON-INSULIN-DEPENDENT
     Route: 048
     Dates: start: 20020529, end: 20020608
  2. ODRIK [Suspect]
     Route: 048
     Dates: start: 19980101, end: 20020613
  3. GLUCOPHAGE [Suspect]
     Indication: DIABETES MELLITUS NON-INSULIN-DEPENDENT
     Route: 048
     Dates: start: 20010101, end: 20020613

REACTIONS (4)
  - HEPATIC STEATOSIS [None]
  - HIATUS HERNIA [None]
  - INFLAMMATION [None]
  - PANCREATITIS ACUTE [None]
